FAERS Safety Report 15265342 (Version 7)
Quarter: 2022Q4

REPORT INFORMATION
  Report Type: Report from Study
  Country: US (occurrence: None)
  Receive Date: 20180810
  Receipt Date: 20221024
  Transmission Date: 20230112
  Serious: Yes (Hospitalization)
  Sender: FDA-Public Use
  Company Number: US-ROCHE-2165713

PATIENT
  Age: 61 Year
  Sex: Male
  Weight: 106.5 kg

DRUGS (25)
  1. ATEZOLIZUMAB [Suspect]
     Active Substance: ATEZOLIZUMAB
     Indication: Renal cell carcinoma
     Dosage: DATE OF MOST RECENT DOSE OF ATEZOLIZUMAB PRIOR TO SAE ONSET: 18/JUL/2018 (AT 11 40)
     Route: 042
     Dates: start: 20180718
  2. VIAGRA [Concomitant]
     Active Substance: SILDENAFIL CITRATE
     Indication: Erectile dysfunction
     Route: 048
     Dates: start: 20180417, end: 20200630
  3. VALTREX [Concomitant]
     Active Substance: VALACYCLOVIR HYDROCHLORIDE
     Route: 048
     Dates: end: 20181001
  4. ANDROGEL [Concomitant]
     Active Substance: TESTOSTERONE
     Dates: start: 20180427
  5. ANDROGEL [Concomitant]
     Active Substance: TESTOSTERONE
     Route: 061
     Dates: start: 20180319, end: 20210331
  6. LASIX [Concomitant]
     Active Substance: FUROSEMIDE
     Dates: start: 20180427
  7. LOPRESSOR [Concomitant]
     Active Substance: METOPROLOL TARTRATE
     Indication: Hypertension
     Route: 048
     Dates: start: 20180531, end: 20180830
  8. COLACE [Concomitant]
     Active Substance: DOCUSATE SODIUM
     Dates: start: 20180427
  9. COLACE [Concomitant]
     Active Substance: DOCUSATE SODIUM
     Route: 048
     Dates: start: 20180531
  10. OLOPATADINE [Concomitant]
     Active Substance: OLOPATADINE
     Indication: Hypersensitivity
     Route: 055
  11. FLONASE [Concomitant]
     Active Substance: FLUTICASONE PROPIONATE
     Indication: Hypersensitivity
     Route: 055
  12. TRIAMCINOLON [Concomitant]
     Dates: start: 20180417
  13. TACROLIMUS [Concomitant]
     Active Substance: TACROLIMUS
  14. VITAMIN D3 [Concomitant]
     Active Substance: CHOLECALCIFEROL
     Dosage: 5000 UNITS
     Route: 048
  15. TYLENOL [Concomitant]
     Active Substance: ACETAMINOPHEN
     Indication: Arthritis
     Route: 048
     Dates: start: 20180803
  16. TYLENOL [Concomitant]
     Active Substance: ACETAMINOPHEN
     Indication: Pain
  17. KENALOG [Concomitant]
     Active Substance: TRIAMCINOLONE ACETONIDE
     Route: 061
     Dates: start: 20171217
  18. PROTOPIC [Concomitant]
     Active Substance: TACROLIMUS
     Indication: Rash
     Route: 061
     Dates: start: 20171221, end: 20200427
  19. ANDROGEL [Concomitant]
     Active Substance: TESTOSTERONE
     Route: 061
     Dates: start: 20180319
  20. PRED FORTE [Concomitant]
     Active Substance: PREDNISOLONE ACETATE
     Indication: Iritis
     Route: 047
     Dates: start: 20180727
  21. CYCLOGYL [Concomitant]
     Active Substance: CYCLOPENTOLATE HYDROCHLORIDE
     Indication: Iritis
     Route: 047
     Dates: start: 20180727
  22. ULTRAM [Concomitant]
     Active Substance: TRAMADOL HYDROCHLORIDE
     Indication: Pain
     Route: 048
     Dates: start: 20180804, end: 20181001
  23. ELIQUIS [Concomitant]
     Active Substance: APIXABAN
     Route: 048
     Dates: start: 20180810, end: 20180810
  24. NORVASC [Concomitant]
     Active Substance: AMLODIPINE BESYLATE
     Indication: Hypertension
     Route: 048
     Dates: start: 20180507
  25. CUTIVATE [Concomitant]
     Active Substance: FLUTICASONE PROPIONATE
     Indication: Seasonal allergy
     Route: 061
     Dates: start: 20180801, end: 20210331

REACTIONS (2)
  - Pleural effusion [Recovered/Resolved]
  - Pulmonary embolism [Recovered/Resolved]

NARRATIVE: CASE EVENT DATE: 20180730
